FAERS Safety Report 17957470 (Version 2)
Quarter: 2020Q3

REPORT INFORMATION
  Report Type: Spontaneous
  Country: TW (occurrence: TW)
  Receive Date: 20200629
  Receipt Date: 20200703
  Transmission Date: 20201103
  Serious: Yes (Hospitalization)
  Sender: FDA-Public Use
  Company Number: TW-PFIZER INC-2020244345

PATIENT
  Age: 73 Year
  Sex: Female

DRUGS (2)
  1. ARCOXIA [Concomitant]
     Active Substance: ETORICOXIB
     Indication: RHEUMATOID ARTHRITIS
     Dosage: 1 DF, 1X/DAY (QD)
  2. XELJANZ XR [Suspect]
     Active Substance: TOFACITINIB CITRATE
     Indication: RHEUMATOID ARTHRITIS
     Dosage: 11 MG, 1X/DAY (QD)
     Route: 048
     Dates: start: 20190703, end: 20200623

REACTIONS (1)
  - Gastroenteritis [Recovering/Resolving]

NARRATIVE: CASE EVENT DATE: 20200623
